FAERS Safety Report 10423713 (Version 2)
Quarter: 2014Q4

REPORT INFORMATION
  Report Type: Spontaneous
  Country: US (occurrence: None)
  Receive Date: 20140722
  Receipt Date: 20141020
  Transmission Date: 20150528
  Serious: Yes (Other)
  Sender: FDA-Public Use
  Company Number: AEGR000517

PATIENT
  Age: 66 Year
  Sex: Female
  Weight: 65.8 kg

DRUGS (20)
  1. PLAVIX (CLOPIDOGREL BISULFATE) [Concomitant]
  2. TIMOLOL MALEATE (TIMOLOL MALEATE) [Concomitant]
     Active Substance: TIMOLOL
  3. DYAZIDE (HYDROCHLOROTHIAZIDE, TRIAMTERENE) [Concomitant]
  4. COMBIGAN (BRIMONIDINE TARTRATE, TIMILOLO MALEATE)) [Concomitant]
  5. AMLODIPINE [Concomitant]
     Active Substance: AMLODIPINE BESYLATE
  6. COQ10 (UBIDECARENONE) [Concomitant]
     Active Substance: UBIDECARENONE
  7. ASPIRIN (ACETYLSALICYLIC ACID) [Concomitant]
     Active Substance: ASPIRIN
  8. OMEGA 3-6-9 (FISH OIL, TOCOPHEROL) [Concomitant]
  9. BENICAR (OLMEMSARTAN MEDOXOMIL) [Concomitant]
  10. JUXTAPID [Suspect]
     Active Substance: LOMITAPIDE MESYLATE
     Indication: TYPE IIA HYPERLIPIDAEMIA
     Route: 048
     Dates: start: 20140526, end: 20140531
  11. TYLENOL [Concomitant]
     Active Substance: ACETAMINOPHEN
  12. VITAMIN D (COLECALCIFEROL) [Concomitant]
  13. VITAMIN E (TOCOPHERYL ACID SUCCINATE) [Concomitant]
  14. TRIAMTERENE AND HYDROCHLOROTHIAZIDE (HYDROCHLOROTHIAZIDE, TRIAMTERENE) [Concomitant]
  15. PROMERTHAZINE HYDROCHLORIDE) [Concomitant]
  16. NADOLOL (NADOLOL) [Concomitant]
     Active Substance: NADOLOL
  17. BENADRYL [Concomitant]
     Active Substance: DIPHENHYDRAMINE HYDROCHLORIDE
  18. BRIMONIDINE ( BRIMONIDINE) [Concomitant]
  19. FOSAMAX [Concomitant]
     Active Substance: ALENDRONATE SODIUM
  20. PRILOSEC (OMEPRAZOLE MAGNESIUM) [Concomitant]

REACTIONS (4)
  - Nausea [None]
  - Influenza like illness [None]
  - Vomiting [None]
  - Diarrhoea [None]

NARRATIVE: CASE EVENT DATE: 201406
